FAERS Safety Report 7158590-4 (Version None)
Quarter: 2010Q4

REPORT INFORMATION
  Report Type: 
  Country: None (occurrence: None)
  Receive Date: 20101214
  Receipt Date: 20101209
  Transmission Date: 20110411
  Serious: Yes (Death)
  Sender: FDA-Public Use
  Company Number: JP-ASTRAZENECA-2010SE55840

PATIENT
  Age: 65 Year
  Sex: Male
  Weight: 50 kg

DRUGS (3)
  1. OMEPRAL [Suspect]
     Indication: STRESS ULCER
     Route: 042
     Dates: start: 20091010, end: 20091101
  2. MEROPEN [Suspect]
     Indication: PNEUMONIA
     Route: 042
     Dates: start: 20091008, end: 20091101
  3. VANCOMYCIN [Suspect]
     Indication: PNEUMONIA
     Dosage: 0.5-1 G/ONCE
     Route: 042
     Dates: start: 20091020, end: 20091030

REACTIONS (2)
  - NECROTISING COLITIS [None]
  - TOXIC EPIDERMAL NECROLYSIS [None]
